FAERS Safety Report 4926378-8 (Version None)
Quarter: 2006Q1

REPORT INFORMATION
  Report Type: 
  Country: None (occurrence: None)
  Receive Date: 20060228
  Receipt Date: 20051108
  Transmission Date: 20060701
  Serious: No
  Sender: FDA-Public Use
  Company Number: US-GLAXOSMITHKLINE-A0581440A

PATIENT
  Age: 16 Year
  Sex: Female
  Weight: 44.5 kg

DRUGS (2)
  1. LAMICTAL [Suspect]
     Indication: BIPOLAR DISORDER
     Dosage: 250MG SEE DOSAGE TEXT
     Route: 048
     Dates: start: 20050927, end: 20051107
  2. ALBUTEROL [Concomitant]

REACTIONS (1)
  - RASH [None]
